FAERS Safety Report 15052264 (Version 1)
Quarter: 2018Q2

REPORT INFORMATION
  Report Type: Spontaneous
  Country: US (occurrence: US)
  Receive Date: 20180601
  Receipt Date: 20180601
  Transmission Date: 20180711
  Serious: Yes (Hospitalization, Other)
  Sender: FDA-Public Use
  Company Number: None

PATIENT
  Age: 34 Year
  Sex: Female
  Weight: 104.33 kg

DRUGS (5)
  1. MIBELAS 24 FE [Suspect]
     Active Substance: ETHINYL ESTRADIOL\NORETHINDRONE ACETATE
     Indication: CONTRACEPTION
     Dosage: ?          QUANTITY:28 DF DOSAGE FORM;OTHER FREQUENCY:1X/NIGHT;?
     Route: 048
     Dates: start: 20170404, end: 20170531
  2. B6 [Concomitant]
     Active Substance: PYRIDOXINE HYDROCHLORIDE
  3. BIRTH CONTROL [Concomitant]
     Active Substance: UNSPECIFIED INGREDIENT
  4. BIOTIN [Concomitant]
     Active Substance: BIOTIN
  5. VITAMIN B12 [Concomitant]
     Active Substance: CYANOCOBALAMIN

REACTIONS (3)
  - Product quality issue [None]
  - Unintended pregnancy [None]
  - Pregnancy on oral contraceptive [None]

NARRATIVE: CASE EVENT DATE: 20170516
